FAERS Safety Report 19577830 (Version 2)
Quarter: 2022Q2

REPORT INFORMATION
  Report Type: Spontaneous
  Country: JP (occurrence: JP)
  Receive Date: 20210719
  Receipt Date: 20220418
  Transmission Date: 20220721
  Serious: Yes (Other)
  Sender: FDA-Public Use
  Company Number: JP-PFIZER INC-2021823681

PATIENT
  Sex: Female

DRUGS (1)
  1. ENBREL [Suspect]
     Active Substance: ETANERCEPT
     Dosage: 25 MG

REACTIONS (7)
  - Wrong technique in device usage process [Unknown]
  - Injury associated with device [Unknown]
  - Incorrect dose administered [Unknown]
  - Haemorrhage [Unknown]
  - Peripheral swelling [Unknown]
  - Anxiety [Unknown]
  - Emotional disorder [Unknown]

NARRATIVE: CASE EVENT DATE: 20210702
